FAERS Safety Report 8869066 (Version 1)
Quarter: 2012Q4

REPORT INFORMATION
  Report Type: Spontaneous
  Country: US (occurrence: None)
  Receive Date: 20121022
  Receipt Date: 20121022
  Transmission Date: 20130627
  Serious: Yes (Hospitalization)
  Sender: FDA-Public Use
  Company Number: 2012MA012446

PATIENT
  Age: 43 Year
  Sex: Female

DRUGS (1)
  1. FEVERALL [Suspect]
     Dosage: 6.5 GM ; 1X; PO
     Route: 048
     Dates: start: 20121002, end: 20121002

REACTIONS (2)
  - Overdose [None]
  - Toxicity to various agents [None]
